FAERS Safety Report 10768835 (Version 1)
Quarter: 2015Q1

REPORT INFORMATION
  Report Type: Spontaneous
  Country: CA (occurrence: CA)
  Receive Date: 20150206
  Receipt Date: 20150206
  Transmission Date: 20150721
  Serious: Yes (Death)
  Sender: FDA-Public Use
  Company Number: CA-ROCHE-1532873

PATIENT
  Age: 63 Year
  Sex: Female

DRUGS (3)
  1. PEGASYS [Suspect]
     Active Substance: PEGINTERFERON ALFA-2A
     Indication: CHRONIC HEPATITIS C
     Dosage: THERAPY DURATION: 178 DAYS
     Route: 058
  2. INCIVEK [Suspect]
     Active Substance: TELAPREVIR
     Indication: CHRONIC HEPATITIS C
     Dosage: THERAPY DURATION: 84 DAYS
     Route: 048
  3. RIBAVIRIN. [Suspect]
     Active Substance: RIBAVIRIN
     Indication: CHRONIC HEPATITIS C
     Dosage: THERAPY DURATION: 178 DAYS
     Route: 048

REACTIONS (5)
  - Respiratory failure [Fatal]
  - Drug ineffective [Unknown]
  - Hepatic failure [Fatal]
  - Ascites [Fatal]
  - Hepatitis C [Fatal]
